FAERS Safety Report 11121472 (Version 2)
Quarter: 2015Q2

REPORT INFORMATION
  Report Type: Spontaneous
  Country: US (occurrence: US)
  Receive Date: 20150519
  Receipt Date: 20150520
  Transmission Date: 20150821
  Serious: No
  Sender: FDA-Public Use
  Company Number: US-009507513-1504USA023555

PATIENT
  Age: 54 Year
  Sex: Male

DRUGS (1)
  1. DULERA [Suspect]
     Active Substance: FORMOTEROL FUMARATE DIHYDRATE\MOMETASONE FUROATE
     Dosage: 2 PUFFS, TWICE DAILY
     Route: 055
     Dates: start: 20150326

REACTIONS (3)
  - Medication error [Unknown]
  - Condition aggravated [Unknown]
  - Product container issue [Unknown]

NARRATIVE: CASE EVENT DATE: 201504
